FAERS Safety Report 5919952-3 (Version None)
Quarter: 2008Q3

REPORT INFORMATION
  Report Type: 
  Country: None (occurrence: None)
  Receive Date: 20080909
  Receipt Date: 20070911
  Transmission Date: 20090109
  Serious: Yes (Other)
  Sender: FDA-Public Use
  Company Number: 163-20785-07070344

PATIENT
  Age: 68 Year
  Sex: Female

DRUGS (3)
  1. THALOMID [Suspect]
     Indication: MULTIPLE MYELOMA
     Dosage: 150 MG, 3 IN 1 D, ORAL ; 100 MG, QD, ORAL ; 50-200 MG, DAILY ,ORAL
     Route: 048
     Dates: start: 20060301, end: 20070101
  2. THALOMID [Suspect]
     Indication: MULTIPLE MYELOMA
     Dosage: 150 MG, 3 IN 1 D, ORAL ; 100 MG, QD, ORAL ; 50-200 MG, DAILY ,ORAL
     Route: 048
     Dates: start: 20070101, end: 20070701
  3. THALOMID [Suspect]
     Indication: MULTIPLE MYELOMA
     Dosage: 150 MG, 3 IN 1 D, ORAL ; 100 MG, QD, ORAL ; 50-200 MG, DAILY ,ORAL
     Route: 048
     Dates: start: 20070701

REACTIONS (4)
  - GASTRIC POLYPS [None]
  - GASTROINTESTINAL HAEMORRHAGE [None]
  - NEUROPATHY PERIPHERAL [None]
  - PAIN IN EXTREMITY [None]
